FAERS Safety Report 6754882-9 (Version None)
Quarter: 2010Q2

REPORT INFORMATION
  Report Type: 
  Country: None (occurrence: None)
  Receive Date: 20100603
  Receipt Date: 20100526
  Transmission Date: 20101027
  Serious: Yes (Other)
  Sender: FDA-Public Use
  Company Number: AU-AMGEN-QUU403152

PATIENT
  Sex: Female

DRUGS (4)
  1. NEUPOGEN [Suspect]
     Indication: CHEMOTHERAPY
  2. FLUDARABINE [Concomitant]
  3. CYCLOPHOSPHAMIDE [Concomitant]
  4. RITUXIMAB [Concomitant]

REACTIONS (8)
  - ARTHRALGIA [None]
  - BONE PAIN [None]
  - CIRCULATORY COLLAPSE [None]
  - DRUG INEFFECTIVE [None]
  - MUSCULAR WEAKNESS [None]
  - NEUROTOXICITY [None]
  - NEUTROPENIA [None]
  - PAIN [None]
